FAERS Safety Report 16037451 (Version 1)
Quarter: 2019Q1

REPORT INFORMATION
  Report Type: Spontaneous
  Country: US (occurrence: US)
  Receive Date: 20190305
  Receipt Date: 20190305
  Transmission Date: 20190418
  Serious: No
  Sender: FDA-Public Use
  Company Number: US-IMPAX LABORATORIES, LLC-2018-IPXL-03524

PATIENT
  Sex: Male

DRUGS (7)
  1. RYTARY [Suspect]
     Active Substance: CARBIDOPA\LEVODOPA
     Indication: PARKINSON^S DISEASE
     Dosage: 61.25/245MG, 3 CAPSULES AT 6AM, 2 CAPSULES AT 10AM, 3 CAPSULES AT 2PM AND 2 CAPSULES AT 6PM
     Route: 048
     Dates: start: 20180625, end: 2018
  2. RYTARY [Suspect]
     Active Substance: CARBIDOPA\LEVODOPA
     Dosage: 61.25/245MG, 2 CAPSULES AT 6AM, 2 CAPSULES AT 10AM, 3 CAPSULES AT 2PM AND 2 CAPSULES AT 6PM
     Route: 048
     Dates: start: 201810
  3. SELEGILINE [Concomitant]
     Active Substance: SELEGILINE
     Indication: PRODUCT USED FOR UNKNOWN INDICATION
     Dosage: UNK
     Route: 065
  4. COMTAN [Concomitant]
     Active Substance: ENTACAPONE
     Indication: PRODUCT USED FOR UNKNOWN INDICATION
     Dosage: UNK
     Route: 065
  5. RYTARY [Suspect]
     Active Substance: CARBIDOPA\LEVODOPA
     Dosage: 36.25/145MG AT 1 CAPSULE AT 10AM, 1 CAPSULE AT 2PM, 1 CAPSULE AT 6PM AND 2 CAPSULE AT BEDTIME
     Route: 048
     Dates: start: 20180625, end: 2018
  6. NEUPRO [Concomitant]
     Active Substance: ROTIGOTINE
     Indication: PRODUCT USED FOR UNKNOWN INDICATION
     Dosage: UNK
     Route: 062
  7. RYTARY [Suspect]
     Active Substance: CARBIDOPA\LEVODOPA
     Dosage: 36.25/145MG AT 1 CAPSULE AT 6AM AND 10AM, 2 CAPSULE AT BEDTIME
     Route: 048
     Dates: start: 201810

REACTIONS (5)
  - Freezing phenomenon [Recovering/Resolving]
  - Therapeutic response shortened [Not Recovered/Not Resolved]
  - Dyskinesia [Recovering/Resolving]
  - On and off phenomenon [Not Recovered/Not Resolved]
  - Prescribed overdose [Unknown]

NARRATIVE: CASE EVENT DATE: 2018
